FAERS Safety Report 6104422-2 (Version None)
Quarter: 2009Q1

REPORT INFORMATION
  Report Type: 
  Country: None (occurrence: None)
  Receive Date: 20090227
  Receipt Date: 20080814
  Transmission Date: 20090719
  Serious: Yes (Hospitalization)
  Sender: FDA-Public Use
  Company Number: RB-3300-2008

PATIENT
  Age: 35 Year
  Sex: Male

DRUGS (3)
  1. SUBOXONE [Suspect]
     Indication: DRUG DEPENDENCE
     Dosage: 8 MG QID SUBLINGUAL, VARYING DOSES WHILE HOSPITALIZED. SUBLINGUAL
     Route: 060
     Dates: start: 20080520, end: 20080727
  2. SUBOXONE [Suspect]
     Indication: DRUG DEPENDENCE
     Dosage: 8 MG QID SUBLINGUAL, VARYING DOSES WHILE HOSPITALIZED. SUBLINGUAL
     Route: 060
     Dates: start: 20080803, end: 20080808
  3. ACCUPRIL [Concomitant]

REACTIONS (1)
  - DRUG WITHDRAWAL SYNDROME [None]
